FAERS Safety Report 6135555-2 (Version None)
Quarter: 2009Q1

REPORT INFORMATION
  Report Type: 
  Country: None (occurrence: None)
  Receive Date: 20090327
  Receipt Date: 20090316
  Transmission Date: 20090719
  Serious: Yes (Hospitalization, Other)
  Sender: FDA-Public Use
  Company Number: PHHY2008JP23440

PATIENT
  Age: 71 Year
  Sex: Female

DRUGS (8)
  1. GLEEVEC [Suspect]
     Dosage: 400 MG DAILY
     Route: 048
     Dates: start: 20020201
  2. GLEEVEC [Suspect]
     Dosage: 200MG DAILY
  3. GLEEVEC [Suspect]
     Dosage: 300 MG DAILY
     Route: 048
     Dates: start: 20020601, end: 20070701
  4. DOXORUBICIN HCL [Concomitant]
     Dosage: UNK
     Dates: start: 20071101
  5. CYCLOPHOSPHAMIDE [Concomitant]
     Indication: B-CELL LYMPHOMA
     Dosage: 5 COURSES
     Dates: start: 20071101
  6. PREDNISONE [Concomitant]
     Indication: B-CELL LYMPHOMA
     Dosage: UNK
     Dates: start: 20071101
  7. RITUXIMAB [Concomitant]
     Dosage: UNK
     Dates: start: 20071101
  8. VINCRISTINE SULFATE [Concomitant]
     Dosage: UNK
     Dates: start: 20071101

REACTIONS (3)
  - DIFFUSE LARGE B-CELL LYMPHOMA [None]
  - HYPOAESTHESIA [None]
  - LYMPHADENOPATHY [None]
